FAERS Safety Report 9487045 (Version 1)
Quarter: 2013Q3

REPORT INFORMATION
  Report Type: Report from Study
  Country: AR (occurrence: AR)
  Receive Date: 20130829
  Receipt Date: 20130829
  Transmission Date: 20140515
  Serious: Yes (Other)
  Sender: FDA-Public Use
  Company Number: PHHY2013AR094187

PATIENT
  Sex: Female

DRUGS (1)
  1. DIOVAN [Suspect]
     Indication: HYPERTENSION
     Dosage: 1 DF, (HALF TABLET IN THE MORNING AND HALF IN THE EVENING) DAILY
     Route: 048

REACTIONS (10)
  - Coronary artery occlusion [Unknown]
  - Cataract [Unknown]
  - Visual impairment [Unknown]
  - Blood cholesterol abnormal [Unknown]
  - Sleep disorder [Unknown]
  - Agitation [Unknown]
  - Mood altered [Unknown]
  - Malaise [Unknown]
  - Dizziness [Unknown]
  - Wrong technique in drug usage process [Unknown]
